FAERS Safety Report 20185666 (Version 1)
Quarter: 2021Q4

REPORT INFORMATION
  Report Type: Spontaneous
  Country: DE (occurrence: DE)
  Receive Date: 20211215
  Receipt Date: 20211215
  Transmission Date: 20220304
  Serious: No
  Sender: FDA-Public Use
  Company Number: DE-ALKEM LABORATORIES LIMITED-DE-ALKEM-2021-06202

PATIENT
  Age: 22 Year
  Sex: Female

DRUGS (1)
  1. ARIPIPRAZOLE [Suspect]
     Active Substance: ARIPIPRAZOLE
     Indication: Antipsychotic drug level
     Dosage: 20 MILLIGRAM, QD
     Route: 065

REACTIONS (2)
  - Dysphonia [Recovered/Resolved]
  - Therapeutic product effect incomplete [Unknown]
